FAERS Safety Report 15204586 (Version 2)
Quarter: 2018Q3

REPORT INFORMATION
  Report Type: Report from Study
  Country: ES (occurrence: ES)
  Receive Date: 20180726
  Receipt Date: 20180827
  Transmission Date: 20181010
  Serious: Yes (Other)
  Sender: FDA-Public Use
  Company Number: ES-ROCHE-2160156

PATIENT
  Age: 77 Year
  Sex: Male

DRUGS (1)
  1. RIVOTRIL [Suspect]
     Active Substance: CLONAZEPAM
     Indication: PRODUCT USED FOR UNKNOWN INDICATION
     Dosage: MOST RECENT DOSE ON 23/FEB/2018
     Route: 048
     Dates: start: 20180223

REACTIONS (5)
  - Disorientation [Recovered/Resolved]
  - Somnolence [Recovered/Resolved]
  - Overdose [Unknown]
  - Agitation [Recovered/Resolved]
  - Depressed level of consciousness [Recovered/Resolved]

NARRATIVE: CASE EVENT DATE: 20180223
